FAERS Safety Report 17518845 (Version 15)
Quarter: 2022Q1

REPORT INFORMATION
  Report Type: Report from Study
  Country: CO (occurrence: CO)
  Receive Date: 20200309
  Receipt Date: 20220128
  Transmission Date: 20220424
  Serious: Yes (Death, Hospitalization, Other)
  Sender: FDA-Public Use
  Company Number: NVSC2020CO053898

PATIENT
  Age: 88 Year
  Sex: Female
  Weight: 38 kg

DRUGS (13)
  1. SANDOSTATIN LAR DEPOT [Suspect]
     Active Substance: OCTREOTIDE ACETATE
     Indication: Acromegaly
     Dosage: 20 MG, QMO (AMPOULE)
     Route: 030
     Dates: start: 201810
  2. SANDOSTATIN LAR DEPOT [Suspect]
     Active Substance: OCTREOTIDE ACETATE
     Dosage: 20 MG, QMO
     Route: 030
     Dates: start: 2019, end: 20210127
  3. SANDOSTATIN LAR DEPOT [Suspect]
     Active Substance: OCTREOTIDE ACETATE
  4. LOSARTAN POTASSIUM [Suspect]
     Active Substance: LOSARTAN POTASSIUM
     Indication: Product used for unknown indication
     Dosage: UNK
     Route: 065
  5. AMLODIPINE BESYLATE [Suspect]
     Active Substance: AMLODIPINE BESYLATE
     Indication: Product used for unknown indication
     Dosage: UNK
     Route: 065
  6. ATORVASTATIN CALCIUM [Suspect]
     Active Substance: ATORVASTATIN CALCIUM
     Indication: Blood cholesterol increased
     Dosage: 40 MG, QD (MANY YEARS AGO)
     Route: 048
  7. ATORVASTATIN CALCIUM [Suspect]
     Active Substance: ATORVASTATIN CALCIUM
     Indication: Blood triglycerides
  8. CARVEDILOL [Suspect]
     Active Substance: CARVEDILOL
     Indication: Hypertension
     Dosage: UNK, Q12H
     Route: 048
     Dates: start: 201912
  9. CARVEDILOL [Suspect]
     Active Substance: CARVEDILOL
     Dosage: 6.25 MG, Q24H
     Route: 065
  10. APIXABAN [Concomitant]
     Active Substance: APIXABAN
     Indication: Anticoagulant therapy
     Dosage: 2.5 MG, Q12H
     Route: 048
     Dates: start: 201912
  11. SPIRONOLACTONE [Concomitant]
     Active Substance: SPIRONOLACTONE
     Indication: Cardiac failure
     Dosage: UNK, Q24H (HALD TABLET)
     Route: 048
     Dates: start: 202004
  12. ENALAPRIL [Concomitant]
     Active Substance: ENALAPRIL
     Indication: Hypertension
     Dosage: 5 MG, Q24H (MANY YEARS AGO)
     Route: 048
  13. FUROSEMIDE [Concomitant]
     Active Substance: FUROSEMIDE
     Indication: Product used for unknown indication
     Dosage: UNK, QD (HALF TABLET)
     Route: 065

REACTIONS (37)
  - Death [Fatal]
  - Infection [Unknown]
  - Inflammation [Not Recovered/Not Resolved]
  - Peripheral swelling [Not Recovered/Not Resolved]
  - Anaemia [Unknown]
  - Cardiac disorder [Unknown]
  - Illness [Unknown]
  - Gastritis [Unknown]
  - Hypotension [Unknown]
  - Cardiac failure [Unknown]
  - Malaise [Unknown]
  - Cholelithiasis [Unknown]
  - Abdominal pain [Unknown]
  - Abdominal pain upper [Unknown]
  - Pyrexia [Unknown]
  - Back pain [Unknown]
  - Aortic aneurysm [Unknown]
  - Urinary tract infection [Recovered/Resolved]
  - Ovarian cancer [Unknown]
  - Moaning [Unknown]
  - Fatigue [Unknown]
  - Blood potassium decreased [Unknown]
  - Blood sodium decreased [Unknown]
  - Bacteraemia [Recovered/Resolved]
  - Bacteriuria [Unknown]
  - Asthenia [Unknown]
  - Product dose omission issue [Unknown]
  - Delirium [Unknown]
  - Thrombosis [Unknown]
  - Hypoxia [Unknown]
  - General physical health deterioration [Unknown]
  - Speech disorder [Unknown]
  - Tension [Unknown]
  - Dizziness [Unknown]
  - Headache [Recovered/Resolved]
  - Headache [Not Recovered/Not Resolved]
  - Hypoaesthesia [Unknown]

NARRATIVE: CASE EVENT DATE: 20191201
